FAERS Safety Report 8550005-4 (Version None)
Quarter: 2012Q3

REPORT INFORMATION
  Report Type: 
  Country: None (occurrence: None)
  Receive Date: 20120730
  Receipt Date: 20120727
  Transmission Date: 20120928
  Serious: Yes (Death)
  Sender: FDA-Public Use
  Company Number: BR-B.I. PHARMACEUTICALS,INC./RIDGEFIELD-2012-BR-00853BR

PATIENT

DRUGS (1)
  1. TRAYENTA [Suspect]

REACTIONS (1)
  - PANCREATITIS [None]
